FAERS Safety Report 21772254 (Version 1)
Quarter: 2022Q4

REPORT INFORMATION
  Report Type: Spontaneous
  Country: US (occurrence: US)
  Receive Date: 20221223
  Receipt Date: 20221223
  Transmission Date: 20230112
  Serious: No
  Sender: FDA-Public Use
  Company Number: US-CTI BIOPHARMA-2022US03218

PATIENT

DRUGS (1)
  1. VONJO [Suspect]
     Active Substance: PACRITINIB
     Indication: Essential thrombocythaemia
     Dosage: 200 MG, BID
     Route: 048
     Dates: start: 20221028

REACTIONS (8)
  - Night sweats [Unknown]
  - Medial tibial stress syndrome [Unknown]
  - Back pain [Unknown]
  - Pain in extremity [Unknown]
  - Splenomegaly [Unknown]
  - Pruritus [Unknown]
  - Diarrhoea [Unknown]
  - Nausea [Unknown]
